FAERS Safety Report 6107255-6 (Version None)
Quarter: 2009Q1

REPORT INFORMATION
  Report Type: 
  Country: None (occurrence: None)
  Receive Date: 20090309
  Receipt Date: 20090304
  Transmission Date: 20090719
  Serious: Yes (Hospitalization)
  Sender: FDA-Public Use
  Company Number: US-BRISTOL-MYERS SQUIBB COMPANY-14508600

PATIENT
  Age: 51 Year
  Sex: Male
  Weight: 122 kg

DRUGS (16)
  1. ABILIFY [Suspect]
     Indication: DEPRESSION
     Dosage: 2005 PATIENT STARTED ABILIFY 10MG WITH INCREASES TO 20MG BY 2006 AND DOSAGE DECREASED TO 5MG
     Route: 048
     Dates: start: 20050101
  2. ABILIFY [Suspect]
     Indication: BIPOLAR DISORDER
     Dosage: 2005 PATIENT STARTED ABILIFY 10MG WITH INCREASES TO 20MG BY 2006 AND DOSAGE DECREASED TO 5MG
     Route: 048
     Dates: start: 20050101
  3. PERCOCET [Suspect]
  4. EFFEXOR [Suspect]
  5. PROVIGIL [Suspect]
  6. SOMA [Suspect]
  7. ADDERALL 10 [Suspect]
  8. ZANAFLEX [Suspect]
  9. CLONAZEPAM [Suspect]
  10. LAMICTAL [Suspect]
  11. SEROQUEL [Concomitant]
  12. METFORMIN HCL [Concomitant]
  13. LOPRESSOR [Concomitant]
  14. HYDROCHLOROTHIAZIDE [Concomitant]
  15. AVACOR [Concomitant]
  16. OXYCONTIN [Concomitant]

REACTIONS (5)
  - DEMENTIA [None]
  - EXHIBITIONISM [None]
  - HALLUCINATION [None]
  - OBSESSIVE-COMPULSIVE DISORDER [None]
  - WEIGHT INCREASED [None]
